FAERS Safety Report 14253549 (Version 1)
Quarter: 2017Q4

REPORT INFORMATION
  Report Type: Spontaneous
  Country: BR (occurrence: BR)
  Receive Date: 20171206
  Receipt Date: 20171206
  Transmission Date: 20180321
  Serious: Yes (Other)
  Sender: FDA-Public Use
  Company Number: BR-009507513-1712BRA001242

PATIENT
  Age: 45 Year
  Sex: Female

DRUGS (1)
  1. NIMEGON MET [Suspect]
     Active Substance: METFORMIN HYDROCHLORIDE\SITAGLIPTIN PHOSPHATE
     Dosage: 50/850 MG, 1 TABLET QD
     Route: 048

REACTIONS (3)
  - Neoplasm malignant [Unknown]
  - Inappropriate schedule of drug administration [Unknown]
  - Diabetes mellitus inadequate control [Unknown]
